FAERS Safety Report 9670893 (Version 1)
Quarter: 2013Q4

REPORT INFORMATION
  Report Type: Spontaneous
  Country: US (occurrence: US)
  Receive Date: 20131106
  Receipt Date: 20131106
  Transmission Date: 20140711
  Serious: Yes (Death)
  Sender: FDA-Public Use
  Company Number: PHHY2013US124872

PATIENT
  Age: 51 Year
  Sex: Male

DRUGS (2)
  1. NILOTINIB [Suspect]
     Indication: CHRONIC MYELOID LEUKAEMIA
  2. RITUXIMAB [Concomitant]
     Indication: CHRONIC MYELOID LEUKAEMIA

REACTIONS (2)
  - Hepatic function abnormal [Fatal]
  - Hepatitis C [Fatal]
